FAERS Safety Report 8365767-9 (Version None)
Quarter: 2012Q2

REPORT INFORMATION
  Report Type: 
  Country: None (occurrence: None)
  Receive Date: 20120517
  Receipt Date: 20120510
  Transmission Date: 20120825
  Serious: Yes (Hospitalization)
  Sender: FDA-Public Use
  Company Number: DK-AMGEN-DNKSP2012028103

PATIENT
  Age: 45 Year
  Sex: Female

DRUGS (2)
  1. PREDNISOLONE [Concomitant]
     Indication: LYMPHOMA
     Dosage: UNK
  2. PROLIA [Suspect]
     Indication: PROPHYLAXIS
     Dosage: 60 MG, UNK
     Route: 058
     Dates: start: 20111220, end: 20111220

REACTIONS (4)
  - HOSPITALISATION [None]
  - VOMITING [None]
  - NAUSEA [None]
  - HEADACHE [None]
